FAERS Safety Report 9502226 (Version 2)
Quarter: 2013Q3

REPORT INFORMATION
  Report Type: Spontaneous
  Country: IT (occurrence: IT)
  Receive Date: 20130906
  Receipt Date: 20130906
  Transmission Date: 20140515
  Serious: Yes (Hospitalization)
  Sender: FDA-Public Use
  Company Number: IT-RANBAXY-2013RR-72948

PATIENT
  Age: 49 Year
  Sex: Male

DRUGS (10)
  1. OMEPRAZOLE [Suspect]
     Indication: PROPHYLAXIS
     Dosage: 40 MG, SINGLE
     Route: 042
     Dates: start: 20130521, end: 20130521
  2. PERFALGAN [Suspect]
     Indication: POSTOPERATIVE ANALGESIA
     Dosage: 1 G, TID
     Route: 042
     Dates: start: 20130521, end: 20130521
  3. PERFALGAN [Suspect]
     Indication: POSTOPERATIVE ANALGESIA
     Dosage: 1 G, SINGLE
     Route: 042
     Dates: start: 20130522, end: 20130522
  4. REMIFENTANIL TEVA [Suspect]
     Indication: ANAESTHESIA
     Dosage: 0.4 MICROGRAM/KG/MIN
     Route: 042
     Dates: start: 20130521, end: 20130521
  5. PROPOFOL [Suspect]
     Indication: ANAESTHESIA
     Dosage: 4 MG/KG/MIN
     Route: 042
     Dates: start: 20130521, end: 20130521
  6. MORPHINE HYDROCHLORIDE [Suspect]
     Indication: PRODUCT USED FOR UNKNOWN INDICATION
     Dosage: 10 MG, SINGLE
     Route: 042
     Dates: start: 20130521, end: 20130521
  7. TORA-DOL [Suspect]
     Indication: POSTOPERATIVE ANALGESIA
     Dosage: UNK
     Route: 042
     Dates: start: 20130521, end: 20130522
  8. ESMERON [Suspect]
     Indication: ANAESTHESIA
     Dosage: UNK
     Route: 042
     Dates: start: 20130521, end: 20130521
  9. CEFAMEZIN [Suspect]
     Indication: ANTIBIOTIC PROPHYLAXIS
     Dosage: 2 G, DAILY
     Route: 042
     Dates: start: 20130521, end: 20130522
  10. IVOR [Suspect]
     Indication: THROMBOSIS PROPHYLAXIS
     Dosage: 3500 IU/DAY
     Route: 058
     Dates: start: 20130521, end: 20130524

REACTIONS (1)
  - Renal failure acute [Recovered/Resolved]
